FAERS Safety Report 8415832-2 (Version None)
Quarter: 2012Q2

REPORT INFORMATION
  Report Type: 
  Country: None (occurrence: None)
  Receive Date: 20120606
  Receipt Date: 20120529
  Transmission Date: 20120825
  Serious: Yes (Death)
  Sender: FDA-Public Use
  Company Number: DK-NOVOPROD-347834

PATIENT
  Age: 48 Year
  Sex: Male
  Weight: 89 kg

DRUGS (3)
  1. INSULATARD NPH HUMAN [Suspect]
     Indication: TYPE 2 DIABETES MELLITUS
     Dosage: UNK
     Dates: start: 20110401
  2. SIMVASTATIN [Concomitant]
     Indication: MYALGIA
  3. VICTOZA [Suspect]
     Indication: TYPE 2 DIABETES MELLITUS
     Dosage: ADMINISTERED FOR 5 DAYS
     Dates: start: 20111104

REACTIONS (4)
  - VOMITING [None]
  - SUDDEN CARDIAC DEATH [None]
  - ACUTE MYOCARDIAL INFARCTION [None]
  - NAUSEA [None]
